FAERS Safety Report 4488251-1 (Version None)
Quarter: 2004Q4

REPORT INFORMATION
  Report Type: 
  Country: None (occurrence: None)
  Receive Date: 20041026
  Receipt Date: 20041012
  Transmission Date: 20050328
  Serious: Yes (Death, Other)
  Sender: FDA-Public Use
  Company Number: 2004239103US

PATIENT
  Age: 60 Year
  Sex: Male

DRUGS (2)
  1. DELTASONE [Suspect]
  2. LISINOPRIL [Concomitant]

REACTIONS (5)
  - FALL [None]
  - MEDICATION ERROR [None]
  - POLYTRAUMATISM [None]
  - PSYCHOTIC DISORDER [None]
  - SCREAMING [None]
